FAERS Safety Report 14938803 (Version 3)
Quarter: 2018Q2

REPORT INFORMATION
  Report Type: Spontaneous
  Country: US (occurrence: US)
  Receive Date: 20180525
  Receipt Date: 20180621
  Transmission Date: 20180711
  Serious: No
  Sender: FDA-Public Use
  Company Number: US-PFIZER INC-2018214724

PATIENT
  Age: 44 Year
  Sex: Male
  Weight: 113.4 kg

DRUGS (4)
  1. LYRICA [Suspect]
     Active Substance: PREGABALIN
     Indication: BACK PAIN
  2. WELLBUTRIN [Concomitant]
     Active Substance: BUPROPION HYDROCHLORIDE
     Indication: DEPRESSION
     Dosage: 200 MG, 1X/DAY
     Route: 048
  3. LYRICA [Suspect]
     Active Substance: PREGABALIN
     Indication: PAIN
     Dosage: 200 MG, UNK
  4. LYRICA [Suspect]
     Active Substance: PREGABALIN
     Indication: INSOMNIA
     Dosage: 200 MG, 2X/DAY
     Route: 048

REACTIONS (5)
  - Arthropathy [Unknown]
  - Feeling abnormal [Unknown]
  - Gait disturbance [Unknown]
  - Insomnia [Unknown]
  - Arthritis [Unknown]
